FAERS Safety Report 9802766 (Version 1)
Quarter: 2014Q1

REPORT INFORMATION
  Report Type: Report from Study
  Country: US (occurrence: US)
  Receive Date: 20140108
  Receipt Date: 20140108
  Transmission Date: 20141002
  Serious: Yes (Death)
  Sender: FDA-Public Use
  Company Number: US-ROCHE-1330557

PATIENT
  Sex: Male
  Weight: 89.5 kg

DRUGS (4)
  1. AVASTIN [Suspect]
     Indication: BRAIN OEDEMA
     Route: 042
  2. AVASTIN [Suspect]
     Indication: GLIOBLASTOMA
     Route: 042
  3. AVASTIN [Suspect]
     Indication: BRAIN NEOPLASM MALIGNANT
     Route: 042
     Dates: start: 20120525
  4. NORMAL SALINE [Concomitant]
     Route: 065

REACTIONS (3)
  - Death [Fatal]
  - Pain [Unknown]
  - Unresponsive to stimuli [Unknown]
